FAERS Safety Report 9963976 (Version 1)
Quarter: 2014Q1

REPORT INFORMATION
  Report Type: Spontaneous
  Country: IT (occurrence: IT)
  Receive Date: 20140305
  Receipt Date: 20140305
  Transmission Date: 20141002
  Serious: Yes (Hospitalization)
  Sender: FDA-Public Use
  Company Number: IT-WATSON-2014-03466

PATIENT
  Age: 89 Year
  Sex: Male

DRUGS (9)
  1. RAMIPRIL (UNKNOWN) [Suspect]
     Indication: CONGESTIVE CARDIOMYOPATHY
     Dosage: 7.5 MG, DAILY
     Route: 048
     Dates: start: 20130301, end: 20131230
  2. LASIX /00032601/ [Suspect]
     Indication: CONGESTIVE CARDIOMYOPATHY
     Dosage: 125 MG, DAILY
     Route: 048
     Dates: start: 20130301, end: 20131230
  3. LASIX /00032601/ [Suspect]
     Dosage: 50 MG, DAILY
     Route: 048
     Dates: start: 20130301, end: 20131230
  4. LANSOX [Concomitant]
     Indication: PRODUCT USED FOR UNKNOWN INDICATION
     Dosage: UNK
     Route: 065
  5. CARDIOASPIRIN [Concomitant]
     Indication: PRODUCT USED FOR UNKNOWN INDICATION
     Dosage: UNK
     Route: 065
  6. SPIRIVA [Concomitant]
     Indication: PRODUCT USED FOR UNKNOWN INDICATION
     Dosage: UNK
     Route: 065
  7. SERETIDE [Concomitant]
     Indication: PRODUCT USED FOR UNKNOWN INDICATION
     Dosage: UNK
     Route: 065
  8. AMLODIPINE [Concomitant]
     Indication: PRODUCT USED FOR UNKNOWN INDICATION
     Dosage: UNK
     Route: 065
  9. ATORVASTATIN [Concomitant]
     Indication: PRODUCT USED FOR UNKNOWN INDICATION
     Dosage: UNK
     Route: 065

REACTIONS (1)
  - Renal failure acute [Recovered/Resolved]
